FAERS Safety Report 8082330-8 (Version None)
Quarter: 2012Q1

REPORT INFORMATION
  Report Type: 
  Country: None (occurrence: None)
  Receive Date: 20120127
  Receipt Date: 20110214
  Transmission Date: 20120608
  Serious: No
  Sender: FDA-Public Use
  Company Number: US-ABBOTT-11P-163-0705853-00

PATIENT
  Sex: Female
  Weight: 47.67 kg

DRUGS (7)
  1. HUMIRA [Suspect]
     Indication: RHEUMATOID ARTHRITIS
     Dates: start: 20100201
  2. METHOTREXATE [Concomitant]
     Indication: RHEUMATOID ARTHRITIS
  3. FOLIC ACID [Concomitant]
     Indication: VITAMIN SUPPLEMENTATION
  4. NEXIUM [Concomitant]
     Indication: GASTROOESOPHAGEAL REFLUX DISEASE
  5. AMLODIPINE BESYLATE [Concomitant]
     Indication: HYPERTENSION
  6. ACETAZOLAMIDE [Concomitant]
     Indication: HYPERTENSION
  7. DICYCLOMINE [Concomitant]
     Indication: GASTROINTESTINAL DISORDER

REACTIONS (1)
  - ALOPECIA [None]
